FAERS Safety Report 10196195 (Version 2)
Quarter: 2014Q2

REPORT INFORMATION
  Report Type: Report from Study
  Country: CA (occurrence: CA)
  Receive Date: 20140527
  Receipt Date: 20140605
  Transmission Date: 20141212
  Serious: Yes (Hospitalization)
  Sender: FDA-Public Use
  Company Number: CA-ABBVIE-14P-028-1240965-00

PATIENT
  Sex: Female

DRUGS (2)
  1. HUMIRA [Suspect]
     Indication: RHEUMATOID ARTHRITIS
     Route: 058
     Dates: start: 20110113, end: 201312
  2. HUMIRA [Suspect]
     Route: 058
     Dates: start: 201403

REACTIONS (6)
  - Fatigue [Unknown]
  - Oophoritis [Unknown]
  - Oophoritis [Unknown]
  - Salpingitis [Unknown]
  - Sepsis [Unknown]
  - Pelvic inflammatory disease [Unknown]
